FAERS Safety Report 9559176 (Version 1)
Quarter: 2013Q3

REPORT INFORMATION
  Report Type: Spontaneous
  Country: US (occurrence: None)
  Receive Date: 20130906
  Receipt Date: 20130906
  Transmission Date: 20140515
  Serious: Yes (Other)
  Sender: FDA-Public Use
  Company Number: 163-POMAL-13062790

PATIENT
  Age: 79 Year
  Sex: Female

DRUGS (5)
  1. POMALYST (POMALIDOMIDE) (CAPSULES) [Suspect]
     Indication: PLASMA CELL MYELOMA
     Route: 048
     Dates: start: 20130523
  2. LEVOTHYROXINE SOIDUM (LEVOTHYROXINE SODIUM) [Concomitant]
  3. CENTRUM SILVER (CENTRUM SILVER) [Concomitant]
  4. METOPROLOL TARTRATE (METOPOROLOL TARTRATE) [Concomitant]
  5. PREDNISONE (PREDNISONE) [Concomitant]

REACTIONS (2)
  - Mouth ulceration [None]
  - Adverse drug reaction [None]
